FAERS Safety Report 6973083-2 (Version None)
Quarter: 2010Q3

REPORT INFORMATION
  Report Type: 
  Country: None (occurrence: None)
  Receive Date: 20100909
  Receipt Date: 20100826
  Transmission Date: 20110219
  Serious: Yes (Hospitalization)
  Sender: FDA-Public Use
  Company Number: US-SANOFI-AVENTIS-2010SA052233

PATIENT
  Age: 45 Year
  Sex: Male
  Weight: 81.65 kg

DRUGS (6)
  1. OXALIPLATIN [Suspect]
     Dosage: HIS CUMULATIVE DOSE OF OXALIPLATIN (250MG/M2) WAS COMPLETED ON 07-26-2010.
     Route: 058
     Dates: start: 20100726, end: 20100726
  2. OXALIPLATIN [Suspect]
     Dosage: IVBP IN 250 ML D5W OVER 1 HOUR WEEKLY FOR 5 DOSES (WHILE ON RADIATION THERAPY)
     Route: 058
     Dates: start: 20100629, end: 20100629
  3. CAPECITABINE [Suspect]
     Dosage: ON MONDAYS THRU FRIDAYS WEEKLY WHILE ON RADIATION(I TABLET X 150MG + 3 TABLETS X 500MG)
     Route: 048
     Dates: start: 20100629, end: 20100802
  4. CAPECITABINE [Suspect]
     Dosage: IN THE EVENING
     Route: 048
     Dates: start: 20100803, end: 20100803
  5. THERAPEUTIC RADIOPHARMACEUTICALS [Suspect]
     Route: 065
     Dates: start: 20100629
  6. HERBAL PREPARATION [Concomitant]
     Route: 065

REACTIONS (5)
  - BLOOD SODIUM DECREASED [None]
  - DYSPNOEA [None]
  - GUILLAIN-BARRE SYNDROME [None]
  - PERIPHERAL MOTOR NEUROPATHY [None]
  - PERIPHERAL SENSORY NEUROPATHY [None]
